FAERS Safety Report 8005894-9 (Version None)
Quarter: 2011Q4

REPORT INFORMATION
  Report Type: 
  Country: None (occurrence: None)
  Receive Date: 20111223
  Receipt Date: 20111221
  Transmission Date: 20120403
  Serious: Yes (Death, Hospitalization, Disabling)
  Sender: FDA-Public Use
  Company Number: UG-GILEAD-2011-0047854

PATIENT
  Sex: Male

DRUGS (5)
  1. EMTRICITABINE/TENOFOVIR DISOPROXIL FUMARATE [Suspect]
     Indication: HIV INFECTION
     Dosage: 500 MG, QOD
     Route: 048
     Dates: start: 20110526, end: 20111213
  2. METOCLOPRAMIDE [Concomitant]
     Indication: NAUSEA
     Dosage: UNK
     Route: 042
  3. COTRIM [Concomitant]
     Indication: PROPHYLAXIS
     Dosage: UNK, QOD
     Dates: start: 20080501
  4. ALUVIA [Suspect]
     Indication: HIV INFECTION
     Dosage: 500 MG, BID
     Route: 048
     Dates: start: 20110526, end: 20111213
  5. CEFTRIAXONE [Concomitant]
     Indication: BACTERIAL INFECTION
     Dosage: UNK
     Route: 042
     Dates: start: 20111125

REACTIONS (1)
  - MENTAL DISORDER DUE TO A GENERAL MEDICAL CONDITION [None]
